FAERS Safety Report 6933754 (Version 2)
Quarter: 2014Q3

REPORT INFORMATION
  Report Type: Spontaneous
  Country: US (occurrence: None)
  Receive Date: 20090226
  Receipt Date: 20140923
  Transmission Date: 20150326
  Serious: Yes (Hospitalization, Other)
  Sender: FDA-Public Use
  Company Number: 2009S1001778

PATIENT
  Age: 79 Year
  Sex: Male
  Weight: 63 kg

DRUGS (8)
  1. PHOSPHO-SODA [Suspect]
     Active Substance: SODIUM PHOSPHATE, DIBASIC\SODIUM PHOSPHATE, MONOBASIC
     Indication: COLONOSCOPY
     Dosage: 90 ML; TOTAL; PO
     Route: 048
     Dates: start: 20080120, end: 20080121
  2. ZANTAC [Concomitant]
     Active Substance: RANITIDINE HYDROCHLORIDE
  3. LISINOPRIL. [Concomitant]
     Active Substance: LISINOPRIL
  4. LEVAQUIN [Concomitant]
     Active Substance: LEVOFLOXACIN
  5. LABETALOL [Concomitant]
     Active Substance: LABETALOL\LABETALOL HYDROCHLORIDE
  6. XOPENEX (LEVOSALBUTAMOL HYDROCHLORIDE) [Concomitant]
  7. DULCOLAX (BISACODYL) [Suspect]
     Active Substance: BISACODYL
  8. ACCUPRIL [Concomitant]
     Active Substance: QUINAPRIL HYDROCHLORIDE

REACTIONS (16)
  - Cough [None]
  - Troponin increased [None]
  - Renal failure chronic [None]
  - Hypertensive crisis [None]
  - Decreased appetite [None]
  - Escherichia urinary tract infection [None]
  - Renal failure acute [None]
  - Hyperkalaemia [None]
  - Glomerulonephritis [None]
  - Prostatic specific antigen increased [None]
  - Renal tubular necrosis [None]
  - Hyperparathyroidism secondary [None]
  - Nausea [None]
  - Fatigue [None]
  - Dialysis [None]
  - Metabolic acidosis [None]

NARRATIVE: CASE EVENT DATE: 20080130
